FAERS Safety Report 22839348 (Version 2)
Quarter: 2024Q4

REPORT INFORMATION
  Report Type: Spontaneous
  Country: CO (occurrence: CO)
  Receive Date: 20230818
  Receipt Date: 20241023
  Transmission Date: 20250115
  Serious: Yes (Hospitalization, Other)
  Sender: DAIICHI
  Company Number: CO-DAIICHI SANKYO, INC.-DSE-2023-133378

PATIENT
  Age: 52 Year
  Sex: Male
  Weight: 71 kg

DRUGS (3)
  1. EFFIENT [Suspect]
     Active Substance: PRASUGREL HYDROCHLORIDE
     Indication: Acute myocardial infarction
     Dosage: 10 MG, QD
     Route: 048
     Dates: start: 20230110, end: 20240822
  2. TICAGRELOR [Concomitant]
     Active Substance: TICAGRELOR
     Indication: Infarction
     Dosage: UNK
     Route: 065
  3. BISOPROLOL [Concomitant]
     Active Substance: BISOPROLOL\BISOPROLOL FUMARATE
     Indication: Infarction
     Dosage: UNK
     Route: 065

REACTIONS (4)
  - Infarction [Recovered/Resolved]
  - Limb discomfort [Recovered/Resolved]
  - Tinnitus [Recovered/Resolved]
  - Incorrect product administration duration [Unknown]

NARRATIVE: CASE EVENT DATE: 20230110
